FAERS Safety Report 8552010-0 (Version None)
Quarter: 2012Q3

REPORT INFORMATION
  Report Type: 
  Country: None (occurrence: None)
  Receive Date: 20120730
  Receipt Date: 20120726
  Transmission Date: 20120928
  Serious: Yes (Hospitalization)
  Sender: FDA-Public Use
  Company Number: IT-SANOFI-AVENTIS-2012SA053085

PATIENT
  Age: 65 Year
  Sex: Female

DRUGS (8)
  1. RAMIPRIL [Suspect]
     Route: 048
     Dates: start: 20070101, end: 20120719
  2. LANSOPRAZOLE [Concomitant]
  3. LORAZEPAM [Concomitant]
  4. LASIX [Suspect]
     Dosage: STRENGTH: 25 MG
     Route: 048
     Dates: start: 20070101, end: 20120719
  5. METFORMIN HYDROCHLORIDE [Concomitant]
  6. AMLODIPINE [Concomitant]
     Route: 048
  7. COUMADIN [Concomitant]
     Indication: ATRIAL FIBRILLATION
     Dosage: STRENGTH: 5 MG
  8. BISOPROLOL FUMARATE [Concomitant]
     Route: 048

REACTIONS (3)
  - HYPONATRAEMIA [None]
  - FALL [None]
  - PSYCHOMOTOR RETARDATION [None]
